FAERS Safety Report 9062644 (Version 1)
Quarter: 2013Q1

REPORT INFORMATION
  Report Type: Spontaneous
  Country: AU (occurrence: AU)
  Receive Date: 20130213
  Receipt Date: 20130213
  Transmission Date: 20140127
  Serious: Yes (Hospitalization, Other)
  Sender: FDA-Public Use
  Company Number: AU-WATSON-2013-01697

PATIENT
  Age: 39 Year
  Sex: Female

DRUGS (3)
  1. LORAZEPAM (WATSON LABORATORIES) [Suspect]
     Indication: SCHIZOPHRENIA
     Dosage: 2 MG, UNKNOWN
     Route: 065
  2. CLOZAPINE [Suspect]
     Indication: SCHIZOPHRENIA
     Dosage: 200 MG, UNK
     Route: 065
  3. RISPERIDONE [Concomitant]
     Indication: SCHIZOPHRENIA
     Dosage: UNK, UNKNOWN
     Route: 065

REACTIONS (3)
  - Acute psychosis [Recovered/Resolved]
  - Catatonia [Recovered/Resolved]
  - Withdrawal syndrome [Recovered/Resolved]
